FAERS Safety Report 4930722-5 (Version None)
Quarter: 2006Q1

REPORT INFORMATION
  Report Type: 
  Country: None (occurrence: None)
  Receive Date: 20060227
  Receipt Date: 20060214
  Transmission Date: 20060701
  Serious: Yes (Other)
  Sender: FDA-Public Use
  Company Number: 2006023793

PATIENT
  Age: 54 Year
  Sex: Male

DRUGS (5)
  1. VIAGRA [Suspect]
     Indication: ERECTILE DYSFUNCTION
     Dosage: 50 MG
     Dates: start: 20060101
  2. ALOPEMT (METHYLDOPA) [Concomitant]
  3. BENAZEPRIL HCL [Concomitant]
  4. FUROSEMIDE [Concomitant]
  5. ZOCOR [Concomitant]

REACTIONS (2)
  - BLINDNESS UNILATERAL [None]
  - HYPERSENSITIVITY [None]
